FAERS Safety Report 5578396-7 (Version None)
Quarter: 2007Q4

REPORT INFORMATION
  Report Type: 
  Country: None (occurrence: None)
  Receive Date: 20071231
  Receipt Date: 20071219
  Transmission Date: 20080405
  Serious: Yes (Other)
  Sender: FDA-Public Use
  Company Number: US-PFIZER INC-2007107965

PATIENT
  Sex: Female
  Weight: 73 kg

DRUGS (9)
  1. CHANTIX [Suspect]
     Indication: SMOKING CESSATION THERAPY
     Dates: start: 20070101, end: 20070101
  2. SERTRALINE [Concomitant]
  3. CARBIDOPA AND LEVODOPA [Concomitant]
  4. MONTELUKAST SODIUM [Concomitant]
  5. ETODOLAC [Concomitant]
  6. TRAMADOL HYDROCHLORIDE AND ACETAMINOPHEN [Concomitant]
  7. ALPRAZOLAM [Concomitant]
  8. SPIRONOLACTONE [Concomitant]
  9. AMBIEN [Concomitant]

REACTIONS (4)
  - DISCOMFORT [None]
  - FOOT OPERATION [None]
  - NAUSEA [None]
  - PROCEDURAL NAUSEA [None]
